FAERS Safety Report 5805680-1 (Version None)
Quarter: 2008Q3

REPORT INFORMATION
  Report Type: 
  Country: None (occurrence: None)
  Receive Date: 20080710
  Receipt Date: 20080529
  Transmission Date: 20090109
  Serious: No
  Sender: FDA-Public Use
  Company Number: A0730191A

PATIENT
  Age: 55 Year
  Sex: Female

DRUGS (9)
  1. TYKERB [Suspect]
     Indication: BREAST CANCER
     Dosage: 5TAB PER DAY
     Route: 048
     Dates: start: 20080528
  2. XELODA [Suspect]
     Indication: BREAST CANCER
     Dosage: 3TAB TWICE PER DAY
     Route: 048
     Dates: start: 20080525
  3. LEVOTHYROXINE SODIUM [Concomitant]
  4. NEURONTIN [Concomitant]
  5. OXYCONTIN [Concomitant]
  6. OXYCODONE HCL [Concomitant]
  7. WELLBUTRIN [Concomitant]
  8. XANAX [Concomitant]
  9. PROMETHAZINE [Concomitant]

REACTIONS (3)
  - ACNE [None]
  - PRURITUS [None]
  - RASH MACULAR [None]
